FAERS Safety Report 18700803 (Version 1)
Quarter: 2021Q1

REPORT INFORMATION
  Report Type: Spontaneous
  Country: US (occurrence: US)
  Receive Date: 20210104
  Receipt Date: 20210104
  Transmission Date: 20210419
  Serious: No
  Sender: FDA-Public Use
  Company Number: None

PATIENT
  Age: 60 Year
  Sex: Male
  Weight: 85.5 kg

DRUGS (9)
  1. ZELBORAF [Suspect]
     Active Substance: VEMURAFENIB
     Indication: THYROID CANCER
     Route: 048
     Dates: start: 20200923
  2. MULTIVITAMIN [Concomitant]
     Active Substance: VITAMINS
  3. PEPCID [Concomitant]
     Active Substance: FAMOTIDINE
  4. CALCIUM [Concomitant]
     Active Substance: CALCIUM
  5. ADVIL [Concomitant]
     Active Substance: IBUPROFEN
  6. TRAMADOL. [Concomitant]
     Active Substance: TRAMADOL
  7. ATORVASTATIN [Concomitant]
     Active Substance: ATORVASTATIN
  8. LEVOTHYROXINE. [Concomitant]
     Active Substance: LEVOTHYROXINE
  9. TYLENOL [Concomitant]
     Active Substance: ACETAMINOPHEN

REACTIONS (1)
  - Sunburn [None]

NARRATIVE: CASE EVENT DATE: 20210104
